FAERS Safety Report 8875709 (Version 1)
Quarter: 2012Q4

REPORT INFORMATION
  Report Type: Report from Study
  Country: IT (occurrence: IT)
  Receive Date: 20121030
  Receipt Date: 20121030
  Transmission Date: 20130627
  Serious: Yes (Hospitalization)
  Sender: FDA-Public Use
  Company Number: IT-ROCHE-786180

PATIENT
  Age: 66 Year
  Sex: Female

DRUGS (14)
  1. BEVACIZUMAB [Suspect]
     Indication: COLON CANCER
     Route: 042
     Dates: start: 20100713, end: 20100720
  2. BEVACIZUMAB [Suspect]
     Dosage: DOSE REDUCED
     Route: 065
  3. BEVACIZUMAB [Suspect]
     Route: 042
     Dates: start: 20100811, end: 20101119
  4. FOLINIC ACID [Suspect]
     Indication: COLON CANCER
     Route: 065
     Dates: start: 20100713
  5. 5-FU [Suspect]
     Indication: COLON CANCER
     Dosage: bolus dose
     Route: 065
     Dates: start: 20100713
  6. 5-FU [Suspect]
     Route: 065
  7. 5-FU [Suspect]
     Route: 041
     Dates: start: 20100811, end: 20101109
  8. 5-FU [Suspect]
     Route: 042
  9. IRINOTECAN HYDROCHLORIDE [Suspect]
     Indication: COLON CANCER
     Route: 042
     Dates: start: 20100713
  10. AMIODAR [Concomitant]
     Indication: ATRIAL FIBRILLATION
     Route: 048
  11. DILZENE [Concomitant]
     Indication: ATRIAL FIBRILLATION
     Route: 048
     Dates: end: 20101123
  12. ASA [Concomitant]
     Indication: ATRIAL FIBRILLATION
     Route: 048
  13. OMEPRAZOLE [Concomitant]
     Route: 048
  14. MYELOSTIM [Concomitant]
     Route: 065
     Dates: start: 20100814, end: 20111003

REACTIONS (8)
  - Diarrhoea [Recovered/Resolved]
  - Vomiting [Recovered/Resolved]
  - Febrile neutropenia [Recovered/Resolved]
  - Syncope [Recovered/Resolved]
  - Weight decreased [Recovered/Resolved]
  - Blood electrolytes decreased [Recovered/Resolved]
  - Hypotension [Recovered/Resolved]
  - Pyrexia [Recovered/Resolved]
